FAERS Safety Report 5863800-7 (Version None)
Quarter: 2008Q3

REPORT INFORMATION
  Report Type: 
  Country: None (occurrence: None)
  Receive Date: 20080827
  Receipt Date: 20080819
  Transmission Date: 20090109
  Serious: Yes (Hospitalization)
  Sender: FDA-Public Use
  Company Number: GXBR2008US01681

PATIENT
  Age: 82 Year
  Sex: Male

DRUGS (2)
  1. SOTALOL (NGX) (SOTALOL) TABLET [Suspect]
     Dosage: 80 MG
  2. AVELOX [Suspect]
     Dosage: 400 MG, QD, ORAL
     Route: 048

REACTIONS (1)
  - DRUG INTERACTION [None]
